FAERS Safety Report 9100187 (Version 1)
Quarter: 2013Q1

REPORT INFORMATION
  Report Type: Report from Study
  Country: US (occurrence: US)
  Receive Date: 20130215
  Receipt Date: 20130215
  Transmission Date: 20140127
  Serious: Yes (Hospitalization)
  Sender: FDA-Public Use
  Company Number: US-ROCHE-1190088

PATIENT
  Age: 71 Year
  Sex: Male
  Weight: 88.53 kg

DRUGS (1)
  1. RITUXIMAB [Suspect]
     Indication: CHRONIC LYMPHOCYTIC LEUKAEMIA
     Route: 050
     Dates: start: 20110912, end: 20111205

REACTIONS (2)
  - Osteonecrosis [Recovered/Resolved]
  - Femur fracture [Recovered/Resolved]
